FAERS Safety Report 6335771-0 (Version None)
Quarter: 2009Q3

REPORT INFORMATION
  Report Type: 
  Country: None (occurrence: None)
  Receive Date: 20090828
  Receipt Date: 20090820
  Transmission Date: 20100115
  Serious: Yes (Other)
  Sender: FDA-Public Use
  Company Number: TRP_06388_2009

PATIENT
  Sex: Female

DRUGS (2)
  1. RIBAPAK (NOT SPECIFIED) [Suspect]
     Indication: HEPATITIS C
     Dosage: DF
     Dates: start: 20090518
  2. PEG-INTRON [Suspect]
     Indication: HEPATITIS C
     Dosage: DF SUBCUTANEOUS
     Route: 058
     Dates: start: 20090518

REACTIONS (4)
  - DEHYDRATION [None]
  - HEADACHE [None]
  - NAUSEA [None]
  - VOMITING [None]
